FAERS Safety Report 5688645-2 (Version None)
Quarter: 2008Q1

REPORT INFORMATION
  Report Type: 
  Country: None (occurrence: None)
  Receive Date: 20080331
  Receipt Date: 20080305
  Transmission Date: 20080703
  Serious: No
  Sender: FDA-Public Use
  Company Number: US-BAYER-200816176NA

PATIENT
  Age: 20 Year
  Sex: Female

DRUGS (2)
  1. MIRENA [Suspect]
     Route: 015
     Dates: start: 20080110, end: 20080207
  2. MIRENA [Suspect]
     Route: 015
     Dates: start: 20080207

REACTIONS (1)
  - IUCD COMPLICATION [None]
